FAERS Safety Report 7717460-0 (Version None)
Quarter: 2011Q3

REPORT INFORMATION
  Report Type: 
  Country: None (occurrence: None)
  Receive Date: 20110823
  Receipt Date: 20110418
  Transmission Date: 20111222
  Serious: Yes (Hospitalization)
  Sender: FDA-Public Use
  Company Number: 20110418CINRY1953

PATIENT
  Age: 34 Year
  Sex: Female

DRUGS (2)
  1. CINRYZE [Suspect]
     Indication: PROPHYLAXIS
     Dosage: (1000 UNIT, AND PRN), INTRAVENOUS
     Route: 042
  2. CINRYZE [Suspect]
     Indication: HEREDITARY ANGIOEDEMA
     Dosage: (1000 UNIT, AND PRN), INTRAVENOUS
     Route: 042

REACTIONS (10)
  - OFF LABEL USE [None]
  - HEREDITARY ANGIOEDEMA [None]
  - CONDITION AGGRAVATED [None]
  - NASOPHARYNGITIS [None]
  - STRESS [None]
  - SWELLING [None]
  - MIGRAINE [None]
  - CHEST PAIN [None]
  - PYREXIA [None]
  - ANGIOEDEMA [None]
